FAERS Safety Report 8223904-0 (Version None)
Quarter: 2012Q1

REPORT INFORMATION
  Report Type: 
  Country: None (occurrence: None)
  Receive Date: 20120321
  Receipt Date: 20120314
  Transmission Date: 20120608
  Serious: Yes (Other)
  Sender: FDA-Public Use
  Company Number: US-PFIZER INC-2012068678

PATIENT
  Sex: Male

DRUGS (17)
  1. XANAX [Suspect]
     Dosage: UNK
  2. VIAGRA [Concomitant]
     Dosage: (100MG TAKE ONE HALF TO ONE TABLET(S) PRN APPROXIMATELY 1 HOUR BEFORE SEXUAL ACTIVITY), AS NEEDED
     Route: 048
  3. FLUTICASONE PROPIONATE [Concomitant]
     Dosage: 2X/DAY (1 ACTUATION INHALE 2 PUFF(S) BID)
  4. OXYCODONE HYDROCHLORIDE [Concomitant]
     Dosage: 30 MG, ONE Q 6 HOURS
     Route: 048
  5. PRILOSEC [Concomitant]
     Dosage: 20 MG, 2X/DAY
  6. ZANAFLEX [Concomitant]
     Dosage: 4 MG, Q 6 TO 8 HR AS NEEDED
     Route: 048
  7. MARIJUANA [Concomitant]
     Dosage: UNK
  8. ALBUTEROL [Concomitant]
     Dosage: AS NEEDED (90MCG / 1 ACTUATION PRN)
  9. PRISTIQ [Suspect]
     Dosage: UNK
  10. PROAIR HFA [Concomitant]
     Dosage: (90MCG/1 ACTUATION LNHALE 2 PUFF(S) BY MOUTH Q 4 TO 6 HR)
  11. PROMETHAZINE HYDROCHLORIDE [Concomitant]
     Indication: NAUSEA
     Dosage: 25 MG, AS NEEDED EVERY 4 HOURS
     Route: 048
  12. ADVAIR DISKUS 100/50 [Concomitant]
     Dosage: (250MCG/50MCG PER 1 BLISTER LNHALATION POWDER INHALE 1 PUFF(S) BID), 2X/DAY
  13. LYRICA [Suspect]
     Dosage: 100 MG, 2X/DAY
     Route: 048
  14. METHADONE HYDROCHLORIDE [Concomitant]
     Dosage: 10 MG, 3X/DAY
  15. REMERON [Concomitant]
     Dosage: 15 MG, AT BEDTIME
     Route: 048
  16. PROMETHAZINE HYDROCHLORIDE [Concomitant]
     Indication: VOMITING
  17. FLONASE [Concomitant]
     Dosage: 50MCG / 1 ACTUATION 2 SPRAY(S) IN EACH NOSTRIL DAILY
     Route: 045

REACTIONS (11)
  - INTERVERTEBRAL DISC PROTRUSION [None]
  - GASTROOESOPHAGEAL REFLUX DISEASE [None]
  - IRRITABLE BOWEL SYNDROME [None]
  - ATTENTION DEFICIT/HYPERACTIVITY DISORDER [None]
  - BIPOLAR I DISORDER [None]
  - ASTHMA [None]
  - MIGRAINE WITHOUT AURA [None]
  - DEPRESSION [None]
  - GENERALISED ANXIETY DISORDER [None]
  - PAIN [None]
  - BACK PAIN [None]
